FAERS Safety Report 6908867-X (Version None)
Quarter: 2010Q3

REPORT INFORMATION
  Report Type: 
  Country: None (occurrence: None)
  Receive Date: 20100805
  Receipt Date: 20100729
  Transmission Date: 20110219
  Serious: Yes (Hospitalization)
  Sender: FDA-Public Use
  Company Number: DE-WYE-H16294610

PATIENT
  Age: 77 Year
  Sex: Male

DRUGS (10)
  1. PANTOZOL [Suspect]
     Indication: GASTRITIS
     Route: 048
     Dates: start: 20100413
  2. CEFTRIAXONE [Interacting]
     Indication: PNEUMONIA
     Route: 042
     Dates: start: 20100408, end: 20100411
  3. ROXITHROMYCIN [Interacting]
     Indication: PNEUMONIA
     Route: 048
     Dates: start: 20100408, end: 20100411
  4. DIGITOXIN [Concomitant]
     Indication: ATRIAL FIBRILLATION
     Route: 048
     Dates: start: 20091101
  5. XIPAMIDE [Concomitant]
     Indication: RENAL FAILURE CHRONIC
     Dosage: UNKNOWN
     Route: 048
  6. AMIODARONE HCL [Concomitant]
     Indication: ATRIAL FIBRILLATION
     Route: 048
     Dates: start: 20091101
  7. LEVOTHYROXINE SODIUM [Concomitant]
     Indication: THYROID DISORDER
     Route: 048
     Dates: start: 20091101
  8. ACETYLSALICYLIC ACID SRT [Concomitant]
     Indication: ATRIAL FIBRILLATION
     Route: 048
     Dates: start: 20100401
  9. TAZOBAC [Interacting]
     Route: 042
     Dates: start: 20100412, end: 20100420
  10. TOREM [Concomitant]
     Indication: RENAL FAILURE CHRONIC
     Route: 048
     Dates: start: 20091101

REACTIONS (2)
  - CLOSTRIDIUM DIFFICILE COLITIS [None]
  - DRUG INTERACTION [None]
